FAERS Safety Report 10199802 (Version 2)
Quarter: 2014Q2

REPORT INFORMATION
  Report Type: Spontaneous
  Country: US (occurrence: US)
  Receive Date: 20140527
  Receipt Date: 20140617
  Transmission Date: 20141212
  Serious: Yes (Other)
  Sender: FDA-Public Use
  Company Number: CHPA2014US006983

PATIENT
  Age: 77 Year
  Sex: Female

DRUGS (5)
  1. VOLTAREN GEL [Suspect]
     Indication: OSTEOARTHRITIS
     Dosage: UNK, QID
     Route: 061
     Dates: start: 20140516
  2. VOLTAREN GEL [Suspect]
     Indication: ARTHRALGIA
  3. VOLTAREN GEL [Suspect]
     Indication: OFF LABEL USE
  4. ACETYLSALICYLIC ACID [Suspect]
     Dosage: UNK, UNK
  5. NAPROXEN [Concomitant]
     Indication: PAIN
     Dosage: 250 MG, UNK

REACTIONS (3)
  - Gastrointestinal haemorrhage [Unknown]
  - Therapeutic response changed [Unknown]
  - Drug administered at inappropriate site [Unknown]
